FAERS Safety Report 6419849-9 (Version None)
Quarter: 2009Q4

REPORT INFORMATION
  Report Type: 
  Country: None (occurrence: None)
  Receive Date: 20091029
  Receipt Date: 20091017
  Transmission Date: 20100525
  Serious: Yes (Other)
  Sender: FDA-Public Use
  Company Number: US-ELI_LILLY_AND_COMPANY-US200907003344

PATIENT
  Sex: Female

DRUGS (12)
  1. FORTEO [Suspect]
     Indication: OSTEOPOROSIS
     Dosage: 20 UG, DAILY (1/D)
     Dates: start: 20080401, end: 20090701
  2. CARAFATE [Concomitant]
     Dosage: TWO TEASPOONS EVERY SIX HOURS (1 GM/10ML)
  3. DEXLANSOPRAZOLE [Concomitant]
     Dosage: 60 MG, DAILY (1/D)
  4. ANTACID TAB [Concomitant]
     Dates: end: 20090701
  5. PRILOSEC [Concomitant]
     Dates: end: 20090701
  6. ASPIRIN [Concomitant]
     Dosage: UNK, UNK
     Dates: end: 20090701
  7. ADVAIR DISKUS 100/50 [Concomitant]
  8. SYMBICORT [Concomitant]
  9. SPIRIVA [Concomitant]
  10. CALCIUM [Concomitant]
  11. DIOVAN [Concomitant]
  12. MULTI-VITAMIN [Concomitant]

REACTIONS (1)
  - GASTRITIS HAEMORRHAGIC [None]
